FAERS Safety Report 10328114 (Version 2)
Quarter: 2014Q3

REPORT INFORMATION
  Report Type: Report from Study
  Country: CN (occurrence: CN)
  Receive Date: 20140721
  Receipt Date: 20140721
  Transmission Date: 20150326
  Serious: Yes (Hospitalization, Disabling)
  Sender: FDA-Public Use
  Company Number: PHHY2014CN023680

PATIENT
  Age: 80 Year
  Sex: Male
  Weight: 65 kg

DRUGS (5)
  1. ASPIRIN ENTERIC COATED TABLET [Concomitant]
     Indication: PROPHYLAXIS
     Dosage: 100 MG, UNK
     Dates: start: 20131219, end: 20140105
  2. ENALAPRIL MALEATE. [Concomitant]
     Active Substance: ENALAPRIL MALEATE
     Indication: BLOOD PRESSURE INADEQUATELY CONTROLLED
     Dosage: 10 MG, UNK
     Dates: start: 20131219, end: 20140105
  3. FOLIC ACID. [Concomitant]
     Active Substance: FOLIC ACID
     Indication: BLOOD PRESSURE INADEQUATELY CONTROLLED
     Dosage: 10 MG, UNK
     Dates: start: 20131219, end: 20140105
  4. VAA489A [Suspect]
     Active Substance: AMLODIPINE\VALSARTAN
     Dosage: 1 DF, QD
     Route: 048
     Dates: start: 20130901, end: 20140220
  5. AMLODIPINE BESYLATE. [Concomitant]
     Active Substance: AMLODIPINE BESYLATE
     Indication: BLOOD PRESSURE INADEQUATELY CONTROLLED
     Dosage: 5 MG, QD
     Dates: start: 20131219, end: 20140105

REACTIONS (3)
  - Cerebral infarction [Recovering/Resolving]
  - Headache [Unknown]
  - Blood pressure inadequately controlled [Unknown]

NARRATIVE: CASE EVENT DATE: 20131218
